FAERS Safety Report 9660171 (Version 4)
Quarter: 2014Q1

REPORT INFORMATION
  Report Type: Report from Study
  Country: US (occurrence: US)
  Receive Date: 20131031
  Receipt Date: 20140211
  Transmission Date: 20141002
  Serious: Yes (Hospitalization, Other)
  Sender: FDA-Public Use
  Company Number: US-PFIZER INC-2013307216

PATIENT
  Age: 64 Year
  Sex: Male
  Weight: 74.38 kg

DRUGS (14)
  1. OXALIPLATIN [Suspect]
     Indication: COLORECTAL CANCER METASTATIC
     Dosage: 85 MG/M2, CYCLIC (EVERY 2 WEEKS)
     Route: 042
     Dates: start: 20130925, end: 20130925
  2. OXALIPLATIN [Suspect]
     Dosage: 85 MG/M2, CYCLIC (EVERY 2 WEEKS)
     Route: 042
     Dates: start: 20131023, end: 20131023
  3. OXALIPLATIN [Suspect]
     Dosage: UNK
     Route: 042
     Dates: start: 20131120
  4. FLUOROURACIL [Suspect]
     Indication: COLORECTAL CANCER METASTATIC
     Dosage: 3200 MG/M2, CYCLIC (EVERY 2 WEEKS)
     Route: 041
     Dates: start: 20130925, end: 20130925
  5. FLUOROURACIL [Suspect]
     Dosage: 1800 MG/M2, CYCLIC (EVERY 2 WEEKS)
     Route: 042
     Dates: start: 20131023, end: 20131023
  6. FLUOROURACIL [Suspect]
     Dosage: 1800 MG, UNK
     Route: 042
     Dates: start: 20131120
  7. IRINOTECAN HCL [Suspect]
     Indication: COLORECTAL CANCER METASTATIC
     Dosage: 165 MG/M2, CYCLIC (EVERY 2 WEEKS)
     Route: 042
     Dates: start: 20130925, end: 20130925
  8. IRINOTECAN HCL [Suspect]
     Dosage: 120 MG, CYCLIC (EVERY 2 WEEKS)
     Route: 042
     Dates: start: 20131023, end: 20131120
  9. BEVACIZUMAB [Suspect]
     Indication: COLORECTAL CANCER METASTATIC
     Dosage: 5 MG/KG, CYCLIC (EVERY 2 WEEKS)
     Route: 042
     Dates: start: 20130925, end: 20130925
  10. BEVACIZUMAB [Suspect]
     Dosage: 5 MG/KG, CYCLIC (EVERY 2 WEEKS)
     Route: 042
     Dates: start: 20131023, end: 20131023
  11. BEVACIZUMAB [Suspect]
     Dosage: 5 MG/KG, CYCLIC (EVERY 2 WEEKS)
     Route: 042
     Dates: start: 20131120
  12. LEUCOVORIN CALCIUM [Suspect]
     Indication: COLORECTAL CANCER METASTATIC
     Dosage: 200 MG/M2, CYCLIC (EVERY 2 WEEKS)
     Route: 042
     Dates: start: 20130925, end: 20130925
  13. LEUCOVORIN CALCIUM [Suspect]
     Dosage: 200 MG/KG, CYCLIC (1 IN 2 WEEKS)
     Route: 042
     Dates: start: 20131023, end: 20131023
  14. LEUCOVORIN CALCIUM [Suspect]
     Dosage: UNK
     Route: 042
     Dates: start: 20131120

REACTIONS (2)
  - Abdominal pain [Recovered/Resolved]
  - Hypokalaemia [Recovered/Resolved]
